FAERS Safety Report 5549303-8 (Version None)
Quarter: 2007Q4

REPORT INFORMATION
  Report Type: 
  Country: None (occurrence: None)
  Receive Date: 20071212
  Receipt Date: 20071203
  Transmission Date: 20080405
  Serious: Yes (Death, Life-Threatening, Hospitalization, Other)
  Sender: FDA-Public Use
  Company Number: US-ELI_LILLY_AND_COMPANY-US200712000677

PATIENT
  Age: 18 Year
  Sex: Female
  Weight: 61.224 kg

DRUGS (5)
  1. HUMULIN R [Suspect]
     Indication: DIABETES MELLITUS
     Dosage: UNK, 2/D
     Route: 058
     Dates: end: 20060301
  2. HUMULIN R [Suspect]
     Dosage: UNK, EACH MORNING
     Route: 058
     Dates: start: 20060301, end: 20060601
  3. HUMULIN N [Suspect]
     Indication: DIABETES MELLITUS
     Dosage: UNK, 2/D
     Route: 058
     Dates: end: 20060301
  4. HUMULIN N [Suspect]
     Dosage: UNK, EACH MORNING
     Route: 058
     Dates: start: 20060301, end: 20060601
  5. EXENATIDE [Concomitant]
     Dosage: 10 UG, EACH EVENING
     Route: 058
     Dates: start: 20060301, end: 20060624

REACTIONS (12)
  - ANEURYSM [None]
  - BACK PAIN [None]
  - BRAIN DEATH [None]
  - BRAIN HERNIATION [None]
  - BRAIN OEDEMA [None]
  - CEREBROVASCULAR ACCIDENT [None]
  - CORNEAL REFLEX DECREASED [None]
  - DIABETIC KETOACIDOSIS [None]
  - FLUSHING [None]
  - HEADACHE [None]
  - HYPERTENSION [None]
  - NECK PAIN [None]
